FAERS Safety Report 7431443-X (Version None)
Quarter: 2011Q2

REPORT INFORMATION
  Report Type: 
  Country: None (occurrence: None)
  Receive Date: 20110422
  Receipt Date: 20110413
  Transmission Date: 20111010
  Serious: Yes (Other)
  Sender: FDA-Public Use
  Company Number: US-ASTRAZENECA-2009UW17906

PATIENT
  Age: 34 Year
  Sex: Female
  Weight: 79.4 kg

DRUGS (14)
  1. SEROQUEL [Suspect]
     Route: 048
     Dates: start: 20070101
  2. XANAX [Concomitant]
     Indication: ANXIETY
     Dates: start: 20050101
  3. SYMBYAX [Concomitant]
     Dosage: 6/25 MG DAILY
     Dates: start: 20051128
  4. SEROQUEL [Suspect]
     Indication: DEPRESSION
     Route: 048
     Dates: start: 19980101
  5. HYDROCODONE BITARTRATE [Concomitant]
     Indication: MYALGIA
     Dates: start: 20051128
  6. NEURONTIN [Concomitant]
     Dates: start: 20051128
  7. CYMBALTA [Concomitant]
     Dates: start: 20040101
  8. ZOLOFT [Concomitant]
  9. PROZAC [Concomitant]
  10. CELEXA [Concomitant]
  11. EFFEXOR [Concomitant]
  12. WELLBUTRIN [Concomitant]
  13. SEROQUEL [Suspect]
     Route: 048
     Dates: start: 20071201
  14. DEPAKOTE [Concomitant]

REACTIONS (7)
  - TYPE 2 DIABETES MELLITUS [None]
  - BLOOD TRIGLYCERIDES INCREASED [None]
  - MULTIPLE SCLEROSIS [None]
  - HYPERLIPIDAEMIA [None]
  - OBESITY [None]
  - BLOOD CHOLESTEROL INCREASED [None]
  - WEIGHT INCREASED [None]
